FAERS Safety Report 12220627 (Version 1)
Quarter: 2016Q1

REPORT INFORMATION
  Report Type: Spontaneous
  Country: US (occurrence: None)
  Receive Date: 20160329
  Receipt Date: 20160329
  Transmission Date: 20160526
  Serious: Yes (Disabling)
  Sender: FDA-Public Use
  Company Number: None

PATIENT
  Age: 28 Year
  Sex: Female
  Weight: 83.92 kg

DRUGS (4)
  1. METHOTREXATE [Concomitant]
     Active Substance: METHOTREXATE
  2. PREDNISONE. [Concomitant]
     Active Substance: PREDNISONE
  3. RHOGAM [Suspect]
     Active Substance: HUMAN RHO(D) IMMUNE GLOBULIN
     Indication: IMMUNE SYSTEM DISORDER
     Route: 030
     Dates: start: 20140707
  4. ENBREL [Concomitant]
     Active Substance: ETANERCEPT

REACTIONS (2)
  - Exposure during pregnancy [None]
  - Rheumatoid arthritis [None]

NARRATIVE: CASE EVENT DATE: 20141009
